FAERS Safety Report 24566254 (Version 1)
Quarter: 2024Q4

REPORT INFORMATION
  Report Type: Report from Study
  Country: US (occurrence: US)
  Receive Date: 20241030
  Receipt Date: 20241030
  Transmission Date: 20250115
  Serious: Yes (Other)
  Sender: GUERBET
  Company Number: US-GUERBET-US-20220067

PATIENT
  Age: 80 Year
  Sex: Female

DRUGS (1)
  1. LIPIODOL [Suspect]
     Active Substance: ETHIODIZED OIL
     Indication: Lymphangiogram
     Route: 027

REACTIONS (2)
  - Middle cerebral artery stroke [Unknown]
  - Pulmonary embolism [Unknown]
